FAERS Safety Report 15590568 (Version 2)
Quarter: 2018Q4

REPORT INFORMATION
  Report Type: Spontaneous
  Country: KR (occurrence: KR)
  Receive Date: 20181106
  Receipt Date: 20181121
  Transmission Date: 20190205
  Serious: Yes (Hospitalization, Other)
  Sender: FDA-Public Use
  Company Number: KR-009507513-1811KOR000844

PATIENT
  Sex: Female

DRUGS (18)
  1. KEYTRUDA [Suspect]
     Active Substance: PEMBROLIZUMAB
     Dosage: 200 MG
     Dates: start: 20181011
  2. ELIQUIS [Concomitant]
     Active Substance: APIXABAN
     Dosage: UNK
     Route: 048
     Dates: start: 20180903, end: 20180911
  3. BEAROBAN [Concomitant]
     Dosage: UNK
     Dates: start: 20180911, end: 20180911
  4. ENTELON [Concomitant]
     Dosage: UNK
     Route: 048
     Dates: start: 20181010
  5. KEYTRUDA [Suspect]
     Active Substance: PEMBROLIZUMAB
     Dosage: 200 MG
     Dates: start: 20180910
  6. KEYTRUDA [Suspect]
     Active Substance: PEMBROLIZUMAB
     Dosage: 200 MG
     Dates: start: 20181106
  7. ENTELON [Concomitant]
     Dosage: UNK
     Dates: start: 20180826, end: 20180826
  8. NORVASC [Concomitant]
     Active Substance: AMLODIPINE BESYLATE
     Dosage: UNK
     Route: 048
     Dates: start: 20181010
  9. ALMAGEL F [Concomitant]
     Dosage: UNK
     Dates: start: 20181010
  10. ELIQUIS [Concomitant]
     Active Substance: APIXABAN
     Dosage: UNK
     Route: 048
     Dates: start: 20181010
  11. KEYTRUDA [Suspect]
     Active Substance: PEMBROLIZUMAB
     Indication: OVARIAN CLEAR CELL CARCINOMA
     Dosage: 200 MG
     Dates: start: 20180807
  12. TWYNSTA [Concomitant]
     Active Substance: AMLODIPINE BESYLATE\TELMISARTAN
     Dosage: UNK
     Route: 048
     Dates: start: 20180831, end: 20180911
  13. DULCOLAX S [Concomitant]
     Dosage: UNK
     Route: 048
     Dates: start: 20180827, end: 20180827
  14. SUSPEN ER [Concomitant]
     Dosage: UNK
     Dates: start: 20181010
  15. SUSPEN ER [Concomitant]
     Dosage: UNK
     Dates: start: 20180910, end: 20180910
  16. LASIX [Concomitant]
     Active Substance: FUROSEMIDE
     Dosage: UNK
     Dates: start: 20181010
  17. MACPERAN [Concomitant]
     Active Substance: METOCLOPRAMIDE HYDROCHLORIDE
     Dosage: UNK
     Dates: start: 20181011
  18. KETOTOP EL [Concomitant]
     Dosage: UNK
     Dates: start: 20181011

REACTIONS (4)
  - Pulmonary embolism [Unknown]
  - Adverse event [Unknown]
  - Pericardial effusion [Unknown]
  - Product use in unapproved indication [Unknown]

NARRATIVE: CASE EVENT DATE: 2018
